FAERS Safety Report 15904069 (Version 3)
Quarter: 2019Q1

REPORT INFORMATION
  Report Type: Spontaneous
  Country: JP (occurrence: JP)
  Receive Date: 20190204
  Receipt Date: 20190307
  Transmission Date: 20190417
  Serious: Yes (Death)
  Sender: FDA-Public Use
  Company Number: JP-TEVA-2019-JP-000486J

PATIENT
  Sex: Female

DRUGS (1)
  1. FUROSEMIDE (FUROSEMIDE) [Suspect]
     Active Substance: FUROSEMIDE
     Route: 065

REACTIONS (2)
  - Pemphigus [Fatal]
  - Pemphigoid [None]
